FAERS Safety Report 9831849 (Version 4)
Quarter: 2014Q2

REPORT INFORMATION
  Report Type: Spontaneous
  Country: CA (occurrence: CA)
  Receive Date: 20140121
  Receipt Date: 20140604
  Transmission Date: 20141212
  Serious: Yes (Death, Hospitalization)
  Sender: FDA-Public Use
  Company Number: CA-BEH-2014040090

PATIENT
  Age: 79 Year
  Sex: Female

DRUGS (5)
  1. PRIVIGEN [Suspect]
     Route: 042
     Dates: start: 20131229
  2. PRIVIGEN [Suspect]
     Route: 042
     Dates: start: 20131230
  3. PRIVIGEN [Suspect]
     Route: 042
     Dates: start: 20131231
  4. PRIVIGEN [Suspect]
     Route: 042
     Dates: start: 20140101
  5. PRIVIGEN [Suspect]
     Route: 042
     Dates: start: 20140102

REACTIONS (1)
  - Haemolysis [Fatal]
